FAERS Safety Report 12347172 (Version 1)
Quarter: 2016Q2

REPORT INFORMATION
  Report Type: Spontaneous
  Country: US (occurrence: US)
  Receive Date: 20160509
  Receipt Date: 20160509
  Transmission Date: 20160815
  Serious: No
  Sender: FDA-Public Use
  Company Number: US-BIOGEN-2016BI00229546

PATIENT
  Age: 63 Year
  Sex: Female

DRUGS (1)
  1. AVONEX [Suspect]
     Active Substance: INTERFERON BETA-1A
     Indication: MULTIPLE SCLEROSIS
     Route: 030
     Dates: start: 20030425

REACTIONS (9)
  - Intentional product misuse [Unknown]
  - Adverse reaction [Unknown]
  - Sinusitis [Unknown]
  - Chills [Recovered/Resolved]
  - Nasopharyngitis [Unknown]
  - Feeling cold [Unknown]
  - Pain [Unknown]
  - Paraesthesia [Recovered/Resolved]
  - Fatigue [Unknown]

NARRATIVE: CASE EVENT DATE: 20160421
